FAERS Safety Report 5501092-9 (Version None)
Quarter: 2007Q4

REPORT INFORMATION
  Report Type: 
  Country: None (occurrence: None)
  Receive Date: 20071026
  Receipt Date: 20071011
  Transmission Date: 20080405
  Serious: No
  Sender: FDA-Public Use
  Company Number: US021438

PATIENT
  Sex: Female

DRUGS (2)
  1. FENTORA [Suspect]
     Indication: COMPLEX REGIONAL PAIN SYNDROME
     Dosage: BUCCAL
     Route: 002
  2. OXYCONTIN [Concomitant]

REACTIONS (2)
  - INCORRECT ROUTE OF DRUG ADMINISTRATION [None]
  - MEDICATION ERROR [None]
